FAERS Safety Report 6951134-9 (Version None)
Quarter: 2010Q3

REPORT INFORMATION
  Report Type: 
  Country: None (occurrence: None)
  Receive Date: 20100828
  Receipt Date: 20100310
  Transmission Date: 20110219
  Serious: No
  Sender: FDA-Public Use
  Company Number: US-ABBOTT-10P-163-0632352-00

PATIENT
  Sex: Female
  Weight: 52.21 kg

DRUGS (4)
  1. NIASPAN [Suspect]
     Indication: LIPOPROTEIN (A) INCREASED
     Route: 048
     Dates: start: 20090501, end: 20090901
  2. NIASPAN [Suspect]
     Dates: start: 20100309, end: 20100309
  3. YAZ [Concomitant]
     Indication: PRODUCT USED FOR UNKNOWN INDICATION
  4. ASPIRIN [Concomitant]
     Indication: PRODUCT USED FOR UNKNOWN INDICATION
     Dates: start: 20100309

REACTIONS (6)
  - ABDOMINAL PAIN UPPER [None]
  - FLUSHING [None]
  - INSOMNIA [None]
  - NAUSEA [None]
  - SKIN BURNING SENSATION [None]
  - URTICARIA [None]
